FAERS Safety Report 4294403-6 (Version None)
Quarter: 2004Q1

REPORT INFORMATION
  Report Type: 
  Country: None (occurrence: None)
  Receive Date: 20040211
  Receipt Date: 20040130
  Transmission Date: 20041129
  Serious: Yes (Hospitalization)
  Sender: FDA-Public Use
  Company Number: MK200402-0035-1

PATIENT
  Age: 53 Year
  Sex: Female

DRUGS (5)
  1. ANAFRANIL [Suspect]
     Dosage: 50MG, DAILY
     Dates: start: 19990101, end: 20031116
  2. LEXOMIL [Suspect]
     Dates: start: 19990101, end: 20031116
  3. DRIPTANE [Suspect]
     Dates: start: 19990101, end: 20031116
  4. BETASERON [Concomitant]
  5. LIORESAL [Concomitant]

REACTIONS (6)
  - CYTOLYTIC HEPATITIS [None]
  - DISTURBANCE IN ATTENTION [None]
  - DYSPNOEA AT REST [None]
  - FIBRIN D DIMER INCREASED [None]
  - PROTHROMBIN TIME PROLONGED [None]
  - THROMBOCYTOPENIA [None]
